FAERS Safety Report 9001299 (Version 1)
Quarter: 2013Q1

REPORT INFORMATION
  Report Type: Spontaneous
  Country: ES (occurrence: ES)
  Receive Date: 20130107
  Receipt Date: 20130107
  Transmission Date: 20140127
  Serious: Yes (Other)
  Sender: FDA-Public Use
  Company Number: ES-MYLANLABS-2012S1026498

PATIENT
  Age: 34 Year
  Sex: Female

DRUGS (1)
  1. BUDESONIDE [Suspect]
     Indication: NASOPHARYNGITIS
     Dosage: 256 MCG (2 PUFFS PER NOSTRIL EACH TIME)
     Route: 045

REACTIONS (1)
  - Hypersensitivity [Recovered/Resolved]
